FAERS Safety Report 6803096-2 (Version None)
Quarter: 2010Q2

REPORT INFORMATION
  Report Type: 
  Country: None (occurrence: None)
  Receive Date: 20100628
  Receipt Date: 20100617
  Transmission Date: 20101027
  Serious: Yes (Hospitalization)
  Sender: FDA-Public Use
  Company Number: A0789968A

PATIENT
  Age: 46 Year
  Sex: Male
  Weight: 99.1 kg

DRUGS (1)
  1. AVANDIA [Suspect]
     Dosage: 4MG UNKNOWN
     Route: 048
     Dates: start: 20000601, end: 20020301

REACTIONS (2)
  - CARDIOMYOPATHY [None]
  - MYOCARDIAL INFARCTION [None]
